FAERS Safety Report 8381668-4 (Version None)
Quarter: 2012Q2

REPORT INFORMATION
  Report Type: 
  Country: None (occurrence: None)
  Receive Date: 20120524
  Receipt Date: 20120514
  Transmission Date: 20120825
  Serious: Yes (Other)
  Sender: FDA-Public Use
  Company Number: US-ASTRAZENECA-2012SE28282

PATIENT
  Age: 47 Year
  Sex: Male

DRUGS (2)
  1. PULMICORT [Suspect]
     Route: 055
  2. PULMICORT [Suspect]
     Route: 055

REACTIONS (5)
  - DYSPNOEA [None]
  - INTENTIONAL DRUG MISUSE [None]
  - MALAISE [None]
  - OBSTRUCTIVE AIRWAYS DISORDER [None]
  - MULTIPLE ALLERGIES [None]
